FAERS Safety Report 14838259 (Version 1)
Quarter: 2018Q2

REPORT INFORMATION
  Report Type: Spontaneous
  Country: SK (occurrence: SK)
  Receive Date: 20180502
  Receipt Date: 20180502
  Transmission Date: 20180711
  Serious: Yes (Other)
  Sender: FDA-Public Use
  Company Number: SK-GLAXOSMITHKLINE-SK2017GSK100438

PATIENT
  Age: 35 Year
  Sex: Female

DRUGS (4)
  1. SPIROMON [Concomitant]
     Indication: ASTHMA
     Dosage: UNK
     Dates: start: 201710
  2. RELVAR ELLIPTA [Suspect]
     Active Substance: FLUTICASONE FUROATE\VILANTEROL TRIFENATATE
     Indication: ASTHMA
     Dosage: UNK
     Dates: start: 201604
  3. NASONEX [Suspect]
     Active Substance: MOMETASONE FUROATE
     Indication: RHINITIS
     Dosage: UNK
  4. VENTOLIN [Suspect]
     Active Substance: ALBUTEROL SULFATE
     Indication: ASTHMA
     Dosage: UNK UNK, PRN
     Route: 055

REACTIONS (5)
  - Maternal exposure before pregnancy [Unknown]
  - Live birth [Unknown]
  - Respiratory tract infection [Recovered/Resolved]
  - Exposure during pregnancy [Unknown]
  - Asthma [Recovered/Resolved]

NARRATIVE: CASE EVENT DATE: 201709
